FAERS Safety Report 16328074 (Version 3)
Quarter: 2019Q3

REPORT INFORMATION
  Report Type: Spontaneous
  Country: NL (occurrence: NL)
  Receive Date: 20190518
  Receipt Date: 20190905
  Transmission Date: 20191004
  Serious: Yes (Hospitalization, Other)
  Sender: FDA-Public Use
  Company Number: NL-AUROBINDO-AUR-APL-2019-021722

PATIENT

DRUGS (7)
  1. TRANEXAMIC ACID. [Concomitant]
     Active Substance: TRANEXAMIC ACID
     Indication: ANGIOEDEMA
     Dosage: 1000 MILLIGRAM, 3 TIMES A DAY, (8 HOUR) 1000 MG, TID
     Route: 065
  2. CETIRIZINE [Suspect]
     Active Substance: CETIRIZINE HYDROCHLORIDE
     Indication: ANGIOEDEMA
     Dosage: 20 MILLIGRAM, TWO TIMES A DAY, 20 MG, BID, MAINTENANCE
     Route: 065
  3. DEXAMETHASONE. [Suspect]
     Active Substance: DEXAMETHASONE
     Indication: ANGIOEDEMA
     Dosage: 4 MILLIGRAM, DURING TWO SUCCESSIVE ACUTE ATTACKS OF ANGIOEDEMA
     Route: 065
  4. RANITIDINE. [Suspect]
     Active Substance: RANITIDINE
     Indication: ANGIOEDEMA
     Dosage: 300 MILLIGRAM, TWO TIMES A DAY (12 HOUR)  (300 MG, BID), MAINTENANCE THERAPY
     Route: 065
  5. CLEMASTINE [Suspect]
     Active Substance: CLEMASTINE
     Indication: ANGIOEDEMA
     Dosage: 2 MILLIGRAM, UNK
     Route: 042
  6. DANAZOL. [Suspect]
     Active Substance: DANAZOL
     Indication: ANGIOEDEMA
     Dosage: 200 MILLIGRAM, ONCE A DAY, 200 MG, QD
     Route: 065
  7. EPINEPHRINE HYDROCHLORIDE. [Suspect]
     Active Substance: EPINEPHRINE HYDROCHLORIDE
     Indication: ANGIOEDEMA
     Dosage: 0.5 MILLIGRAM, UNK
     Route: 065

REACTIONS (3)
  - Drug ineffective for unapproved indication [Unknown]
  - Drug ineffective [Unknown]
  - Myopathy [Recovered/Resolved]
